FAERS Safety Report 19548885 (Version 1)
Quarter: 2021Q3

REPORT INFORMATION
  Report Type: Spontaneous
  Country: US (occurrence: US)
  Receive Date: 20210714
  Receipt Date: 20210714
  Transmission Date: 20211014
  Serious: Yes (Hospitalization)
  Sender: FDA-Public Use
  Company Number: US-MYLANLABS-2021M1041531

PATIENT
  Age: 46 Year
  Sex: Female

DRUGS (1)
  1. EVEROLIMUS. [Suspect]
     Active Substance: EVEROLIMUS
     Indication: TUBEROUS SCLEROSIS COMPLEX
     Dosage: UNK, RECEIVING FOR 10 YEARS
     Route: 065

REACTIONS (2)
  - Hypoxia [Recovered/Resolved]
  - Organising pneumonia [Recovered/Resolved]
